FAERS Safety Report 23779908 (Version 1)
Quarter: 2024Q2

REPORT INFORMATION
  Report Type: Spontaneous
  Country: IL (occurrence: IL)
  Receive Date: 20240424
  Receipt Date: 20240424
  Transmission Date: 20240716
  Serious: Yes (Other)
  Sender: FDA-Public Use
  Company Number: IL-ALXN-202404EEA001164IL

PATIENT
  Age: 3 Year
  Sex: Male

DRUGS (1)
  1. KANUMA [Suspect]
     Active Substance: SEBELIPASE ALFA
     Indication: Lysosomal acid lipase deficiency
     Dosage: UNK
     Route: 065
     Dates: start: 2021

REACTIONS (1)
  - Protein-losing gastroenteropathy [Unknown]

NARRATIVE: CASE EVENT DATE: 20240401
